FAERS Safety Report 4834598-6 (Version None)
Quarter: 2005Q4

REPORT INFORMATION
  Report Type: 
  Country: None (occurrence: None)
  Receive Date: 20051122
  Receipt Date: 20050503
  Transmission Date: 20060501
  Serious: No
  Sender: FDA-Public Use
  Company Number: US-BRISTOL-MYERS SQUIBB COMPANY-12954095

PATIENT
  Age: 71 Year
  Sex: Female

DRUGS (6)
  1. PRAVACHOL [Suspect]
     Indication: CARDIAC DISORDER
  2. TICLID [Concomitant]
  3. TOPROL-XL [Concomitant]
  4. ASPIRIN [Concomitant]
  5. LEVOXYL [Concomitant]
  6. ALTACE [Concomitant]

REACTIONS (1)
  - RASH [None]
